FAERS Safety Report 7341855-0 (Version None)
Quarter: 2011Q1

REPORT INFORMATION
  Report Type: 
  Country: None (occurrence: None)
  Receive Date: 20110309
  Receipt Date: 20110225
  Transmission Date: 20110831
  Serious: Yes (Other)
  Sender: FDA-Public Use
  Company Number: US-CELGENEUS-163-20785-11023181

PATIENT
  Sex: Male

DRUGS (2)
  1. THALOMID [Suspect]
     Dosage: 400 MILLIGRAM
     Route: 048
     Dates: start: 20101001
  2. THALOMID [Suspect]
     Dosage: 200MG-400MG
     Route: 048
     Dates: start: 20050401

REACTIONS (1)
  - NEOPLASM MALIGNANT [None]
